FAERS Safety Report 8607955 (Version 3)
Quarter: 2014Q1

REPORT INFORMATION
  Report Type: Spontaneous
  Country: US (occurrence: US)
  Receive Date: 20120611
  Receipt Date: 20140108
  Transmission Date: 20141002
  Serious: Yes (Hospitalization, Other)
  Sender: FDA-Public Use
  Company Number: US-ASTRAZENECA-2012SE35340

PATIENT
  Age: 48 Year
  Sex: Female

DRUGS (30)
  1. NEXIUM [Suspect]
     Indication: GASTROOESOPHAGEAL REFLUX DISEASE
     Route: 048
     Dates: start: 200603, end: 201010
  2. NEXIUM [Suspect]
     Indication: DYSPEPSIA
     Route: 048
     Dates: start: 200603, end: 201010
  3. NEXIUM [Suspect]
     Indication: GASTROOESOPHAGEAL REFLUX DISEASE
     Route: 048
     Dates: start: 20060428
  4. NEXIUM [Suspect]
     Indication: DYSPEPSIA
     Route: 048
     Dates: start: 20060428
  5. DEXILANT [Concomitant]
  6. PROTONIX [Concomitant]
     Dates: start: 2013
  7. PEPTO BISMOL [Concomitant]
     Indication: DIARRHOEA
  8. PROZAC [Concomitant]
  9. LORITAB [Concomitant]
  10. MULTI VITAMIN [Concomitant]
  11. FOLIC ACID [Concomitant]
  12. MAGNESIUM [Concomitant]
  13. REMERON [Concomitant]
  14. ESTRADIOL [Concomitant]
     Dates: start: 20060426
  15. CLONAZEPAM [Concomitant]
     Dates: start: 20060426
  16. EFFEXOR XR [Concomitant]
     Dates: start: 20060426
  17. PROMETHAZINE [Concomitant]
     Dates: start: 20060426
  18. AMBIEN [Concomitant]
     Dates: start: 20060731
  19. HYDROCODONE/APAP [Concomitant]
     Dates: start: 20060526
  20. GABAPENTIN [Concomitant]
     Dates: start: 20060828
  21. MIRTAZAPINE [Concomitant]
     Dates: start: 20061007
  22. CYCLOBENZAPRINE [Concomitant]
     Dates: start: 20061024
  23. RANITIDINE [Concomitant]
     Dates: start: 20070122
  24. SEROQUEL [Concomitant]
     Dates: start: 20070716
  25. METOCLOPRAMIDE [Concomitant]
     Dates: start: 20070823
  26. CHLORZOXAZONE [Concomitant]
     Dates: start: 20071009
  27. OXYCODONE HCL [Concomitant]
     Dates: start: 20080130
  28. FAMOTIDINE [Concomitant]
     Dates: start: 20080414
  29. ABILIFY [Concomitant]
     Dates: start: 20080604
  30. SALSALATE [Concomitant]
     Dates: start: 20090324

REACTIONS (11)
  - Hip fracture [Unknown]
  - Bone neoplasm [Unknown]
  - Guillain-Barre syndrome [Unknown]
  - Osteoporosis [Unknown]
  - Spinal fracture [Unknown]
  - Wrist fracture [Unknown]
  - Multiple fractures [Unknown]
  - Lower limb fracture [Unknown]
  - Rheumatoid arthritis [Unknown]
  - Vitamin D deficiency [Unknown]
  - Blood magnesium decreased [Unknown]
